FAERS Safety Report 7180414-X (Version None)
Quarter: 2010Q4

REPORT INFORMATION
  Report Type: 
  Country: None (occurrence: None)
  Receive Date: 20101221
  Receipt Date: 20101216
  Transmission Date: 20110411
  Serious: Yes (Hospitalization)
  Sender: FDA-Public Use
  Company Number: B0688716A

PATIENT
  Sex: Male

DRUGS (4)
  1. AUGMENTIN [Suspect]
     Indication: UROSEPSIS
     Route: 065
     Dates: start: 20090101
  2. ROCEPHIN [Suspect]
     Indication: UROSEPSIS
     Route: 065
     Dates: start: 20090728
  3. GENTAMICIN [Suspect]
     Indication: UROSEPSIS
     Route: 065
     Dates: start: 20090728
  4. OFLOCET [Suspect]
     Indication: UROSEPSIS
     Route: 065
     Dates: start: 20090101

REACTIONS (3)
  - BLOOD CREATININE INCREASED [None]
  - DEHYDRATION [None]
  - RENAL FAILURE ACUTE [None]
